FAERS Safety Report 9866862 (Version 2)
Quarter: 2014Q1

REPORT INFORMATION
  Report Type: Spontaneous
  Country: US (occurrence: US)
  Receive Date: 20140204
  Receipt Date: 20140312
  Transmission Date: 20141002
  Serious: Yes (Hospitalization, Other)
  Sender: FDA-Public Use
  Company Number: US-ROCHE-1338639

PATIENT
  Age: 61 Year
  Sex: Female

DRUGS (8)
  1. RITUXAN [Suspect]
     Indication: NON-HODGKIN^S LYMPHOMA
     Dosage: 7 HOURS INFUSION
     Route: 042
     Dates: start: 20130930
  2. RITUXAN [Suspect]
     Route: 042
     Dates: start: 20131014
  3. ULTRASE [Concomitant]
     Dosage: AS NEEDED
     Route: 048
  4. ATIVAN [Concomitant]
     Dosage: AS NEEDED
     Route: 048
  5. CYMBALTA [Concomitant]
     Dosage: DAILY
     Route: 048
  6. LISINOPRIL [Concomitant]
     Route: 048
  7. TOPROL XL [Concomitant]
     Route: 065
  8. NUCYNTA [Concomitant]
     Indication: PAIN
     Dosage: 25-50 MG
     Route: 065

REACTIONS (21)
  - Tachycardia [Unknown]
  - Cardiac failure congestive [Unknown]
  - Malaise [Recovered/Resolved]
  - Dizziness [Not Recovered/Not Resolved]
  - Asthenia [Unknown]
  - Pyrexia [Recovered/Resolved]
  - Pain [Not Recovered/Not Resolved]
  - Fatigue [Not Recovered/Not Resolved]
  - Hypotension [Unknown]
  - Nausea [Recovered/Resolved]
  - Fluid overload [Unknown]
  - Bifascicular block [Unknown]
  - Dyspnoea exertional [Unknown]
  - Troponin T increased [Unknown]
  - Ejection fraction decreased [Unknown]
  - Temporomandibular joint syndrome [Unknown]
  - Hyperhidrosis [Unknown]
  - Arthralgia [Unknown]
  - Chills [Unknown]
  - Hypertension [Unknown]
  - Rash [Recovered/Resolved]
